FAERS Safety Report 4451798-8 (Version None)
Quarter: 2004Q3

REPORT INFORMATION
  Report Type: 
  Country: None (occurrence: None)
  Receive Date: 20040813
  Receipt Date: 20040429
  Transmission Date: 20050211
  Serious: No
  Sender: FDA-Public Use
  Company Number: S04-USA-03560-01

PATIENT
  Age: 86 Year
  Sex: Female

DRUGS (2)
  1. NAMENDA [Suspect]
     Indication: MIGRAINE
     Dosage: 5 MG QD PO
     Route: 048
     Dates: start: 20040426
  2. MUTLIPLE MEDICATIONS (NOS) [Concomitant]

REACTIONS (1)
  - RASH [None]
